FAERS Safety Report 15121306 (Version 6)
Quarter: 2019Q3

REPORT INFORMATION
  Report Type: Spontaneous
  Country: FR (occurrence: FR)
  Receive Date: 20180709
  Receipt Date: 20190729
  Transmission Date: 20191004
  Serious: Yes (Hospitalization, Other)
  Sender: FDA-Public Use
  Company Number: FR-AUROBINDO-AUR-APL-2018-034756

PATIENT

DRUGS (7)
  1. VALACYCLOVIR [Suspect]
     Active Substance: VALACYCLOVIR HYDROCHLORIDE
     Indication: OPHTHALMIC HERPES SIMPLEX
     Dosage: 500 MG, UNK (TWO TABLETS THREE TIMES A DAY)
     Route: 048
  2. ACICLOVIR TABLETS [Suspect]
     Active Substance: ACYCLOVIR
     Indication: OPHTHALMIC HERPES SIMPLEX
     Dosage: UNK
     Route: 048
  3. VALACYCLOVIR [Suspect]
     Active Substance: VALACYCLOVIR HYDROCHLORIDE
     Dosage: 6 DOSAGE FORM, ONCE A DAY
     Route: 048
  4. GANCICLOVIR. [Suspect]
     Active Substance: GANCICLOVIR
     Dosage: UNK EYE GEL
     Route: 047
  5. GANCICLOVIR. [Suspect]
     Active Substance: GANCICLOVIR
     Indication: OPHTHALMIC HERPES SIMPLEX
     Dosage: UNK
     Route: 061
  6. TRIFLURIDINE. [Suspect]
     Active Substance: TRIFLURIDINE
     Indication: OPHTHALMIC HERPES SIMPLEX
     Dosage: UNK
     Route: 061
  7. VIROPTIC [Suspect]
     Active Substance: TRIFLURIDINE
     Indication: OPHTHALMIC HERPES SIMPLEX
     Dosage: UNK
     Route: 065

REACTIONS (7)
  - Prescribed overdose [Unknown]
  - Therapy non-responder [Unknown]
  - Drug ineffective [Recovered/Resolved]
  - Drug resistance [Recovered/Resolved]
  - Pathogen resistance [Recovered/Resolved]
  - Condition aggravated [Recovered/Resolved]
  - Ophthalmic herpes simplex [Recovered/Resolved]
